FAERS Safety Report 5946696-4 (Version None)
Quarter: 2008Q4

REPORT INFORMATION
  Report Type: 
  Country: None (occurrence: None)
  Receive Date: 20081110
  Receipt Date: 20081001
  Transmission Date: 20090506
  Serious: No
  Sender: FDA-Public Use
  Company Number: A0747935A

PATIENT
  Age: 81 Year
  Sex: Female

DRUGS (7)
  1. ALTABAX [Suspect]
     Indication: TRAUMATIC ULCER
     Dosage: 1APP TWICE PER DAY
     Route: 061
     Dates: start: 20080915, end: 20080915
  2. SERTRALINE [Concomitant]
  3. NADOLOL [Concomitant]
  4. QUINAPRIL [Concomitant]
  5. CLONAZEPAM [Concomitant]
  6. PROPAFENONE HCL [Concomitant]
  7. ZYMAR [Concomitant]

REACTIONS (4)
  - LIP DISORDER [None]
  - PRURITUS [None]
  - RASH MACULAR [None]
  - URTICARIA [None]
